FAERS Safety Report 20358968 (Version 1)
Quarter: 2022Q1

REPORT INFORMATION
  Report Type: Spontaneous
  Country: CA (occurrence: CA)
  Receive Date: 20220120
  Receipt Date: 20220120
  Transmission Date: 20220423
  Serious: Yes (Other)
  Sender: FDA-Public Use
  Company Number: CA-BAXTER-2022BAX000874

PATIENT
  Sex: Female

DRUGS (25)
  1. CYCLOPHOSPHAMIDE [Suspect]
     Active Substance: CYCLOPHOSPHAMIDE
     Indication: Product used for unknown indication
     Dosage: DOSAGE FORM: NOT SPECIFIED
     Route: 042
  2. ACTEMRA [Suspect]
     Active Substance: TOCILIZUMAB
     Indication: Product used for unknown indication
     Dosage: DOSAGE FORM NOT SPECIFIED
     Route: 065
  3. CLONAZEPAM [Suspect]
     Active Substance: CLONAZEPAM
     Indication: Insomnia
     Dosage: TABLETS
     Route: 048
  4. HUMIRA [Suspect]
     Active Substance: ADALIMUMAB
     Indication: Product used for unknown indication
     Dosage: SOLUTION SUBCUTANEOUS
     Route: 058
  5. METHOTREXATE [Suspect]
     Active Substance: METHOTREXATE
     Indication: Product used for unknown indication
     Dosage: DOSAGE FORM: NOT SPECIFIED
     Route: 058
  6. MYCOPHENOLATE MOFETIL [Suspect]
     Active Substance: MYCOPHENOLATE MOFETIL
     Indication: Scleritis
     Route: 065
  7. MYCOPHENOLATE MOFETIL [Suspect]
     Active Substance: MYCOPHENOLATE MOFETIL
     Indication: Inflammation
     Dosage: DOSAGE FORM NOT SPECIFIED
     Route: 048
  8. REMICADE [Suspect]
     Active Substance: INFLIXIMAB
     Indication: Product used for unknown indication
     Dosage: DOSAGE FORM: POWDER FOR SOLUTION INTRAVENOUS
     Route: 042
  9. ALENDRONATE SODIUM [Concomitant]
     Active Substance: ALENDRONATE SODIUM
     Indication: Bone disorder
     Route: 048
  10. BETAHISTINE [Concomitant]
     Active Substance: BETAHISTINE
     Indication: Dizziness
     Route: 065
  11. BUDESONIDE [Concomitant]
     Active Substance: BUDESONIDE
     Indication: Respiratory disorder
     Dosage: DOSAGE FORM NOT SPECIFIED,
     Route: 065
  12. DICYCLOMINE HYDROCHLORIDE [Concomitant]
     Active Substance: DICYCLOMINE HYDROCHLORIDE
     Indication: Muscle spasms
     Route: 048
  13. FORMOTEROL FUMARATE [Concomitant]
     Active Substance: FORMOTEROL FUMARATE
     Indication: Respiratory disorder
     Route: 065
  14. GABAPENTIN [Concomitant]
     Active Substance: GABAPENTIN
     Indication: Relaxation therapy
     Dosage: DOSAGE FORM: NOT SPECIFIED
     Route: 048
  15. MORPHINE [Concomitant]
     Active Substance: MORPHINE
     Indication: Pain
     Dosage: DOSAGE FORM NOT SPECIFIED
     Route: 065
  16. MORPHINE SULFATE [Concomitant]
     Active Substance: MORPHINE SULFATE
     Indication: Product used for unknown indication
     Dosage: DOSAGE FORM: NOT SPECIFIED
     Route: 048
  17. OMEPRAZOLE [Concomitant]
     Active Substance: OMEPRAZOLE
     Indication: Dyspepsia
     Dosage: DOSAGE FORM NOT SPECIFIED
     Route: 065
  18. ONDANSETRON HYDROCHLORIDE [Concomitant]
     Active Substance: ONDANSETRON HYDROCHLORIDE
     Indication: Nausea
     Route: 048
  19. HERBALS\PLANTAGO OVATA LEAF [Concomitant]
     Active Substance: HERBALS\PLANTAGO OVATA LEAF
     Indication: Bowel movement irregularity
     Route: 048
  20. PREDNISONE [Concomitant]
     Active Substance: PREDNISONE
     Indication: Inflammation
     Dosage: DOSAGE FORM: NOT SPECIFIED
     Route: 065
  21. SLOW K [Concomitant]
     Active Substance: POTASSIUM CHLORIDE
     Indication: Product used for unknown indication
     Route: 048
  22. SPIRONOLACTONE [Concomitant]
     Active Substance: SPIRONOLACTONE
     Indication: Diuretic therapy
     Dosage: DOSAGE FORM : TABLETS
     Route: 048
  23. TYLENOL [Concomitant]
     Active Substance: ACETAMINOPHEN
     Indication: Pain
     Dosage: DOSAGE FORM NOT SPECIFIED
     Route: 065
  24. VITAMIN D3 [Concomitant]
     Active Substance: CHOLECALCIFEROL
     Indication: Vitamin supplementation
     Route: 065
  25. WARFARIN [Concomitant]
     Active Substance: WARFARIN
     Indication: Anticoagulant therapy
     Route: 065

REACTIONS (5)
  - Drug ineffective [Not Recovered/Not Resolved]
  - Poor peripheral circulation [Not Recovered/Not Resolved]
  - Scleritis [Not Recovered/Not Resolved]
  - Takayasu^s arteritis [Not Recovered/Not Resolved]
  - Therapeutic product effect incomplete [Not Recovered/Not Resolved]
